FAERS Safety Report 19075033 (Version 3)
Quarter: 2021Q2

REPORT INFORMATION
  Report Type: Spontaneous
  Country: PL (occurrence: PL)
  Receive Date: 20210330
  Receipt Date: 20210512
  Transmission Date: 20210717
  Serious: Yes (Hospitalization)
  Sender: FDA-Public Use
  Company Number: PL-CELGENEUS-POL-20210306824

PATIENT
  Age: 73 Year
  Sex: Male
  Weight: 78 kg

DRUGS (17)
  1. ENCORTON [Concomitant]
     Active Substance: PREDNISONE
     Indication: ACUTE FEBRILE NEUTROPHILIC DERMATOSIS
     Dosage: 10 MILLIGRAM
     Route: 048
     Dates: start: 20201231
  2. METRONIDAZOL [Concomitant]
     Active Substance: METRONIDAZOLE
     Indication: INFLAMMATION
     Route: 065
     Dates: start: 2021
  3. GASEC [Concomitant]
     Active Substance: OMEPRAZOLE SODIUM
     Indication: PROPHYLAXIS AGAINST GASTROINTESTINAL ULCER
     Dosage: 20 MILLIGRAM
     Route: 048
     Dates: start: 20201231
  4. VITAMIN D [Concomitant]
     Active Substance: VITAMIN D NOS
     Indication: OSTEOPOROSIS PROPHYLAXIS
     Dosage: 500 IU (INTERNATIONAL UNIT)
     Route: 048
     Dates: start: 20201231
  5. ONDANSETRON [Concomitant]
     Active Substance: ONDANSETRON
     Indication: PROPHYLAXIS OF NAUSEA AND VOMITING
     Dosage: 32 MILLIGRAM
     Route: 048
     Dates: start: 20201216
  6. TRITACE [Concomitant]
     Active Substance: RAMIPRIL
     Indication: HYPERTENSION
     Dosage: 5 MILLIGRAM
     Route: 048
     Dates: start: 20201231
  7. BIOSOTAL [Concomitant]
     Indication: CORONARY ARTERY DISEASE
     Route: 048
  8. ASMAG [Concomitant]
     Indication: PROPHYLAXIS
     Dosage: 1000 MILLIGRAM
     Route: 048
     Dates: start: 20200102
  9. KALIPOZ [Concomitant]
     Active Substance: POTASSIUM CHLORIDE
     Indication: PROPHYLAXIS
     Dosage: 1250 MILLIGRAM
     Route: 048
     Dates: start: 20200107
  10. TAZOCIN [Concomitant]
     Active Substance: PIPERACILLIN SODIUM\TAZOBACTAM SODIUM
     Indication: INFLAMMATION
     Route: 065
     Dates: start: 2021
  11. ACARD [Concomitant]
     Indication: CORONARY ARTERY DISEASE
     Dosage: 75 MILLIGRAM
     Route: 048
     Dates: start: 20210107
  12. CALPEROS [Concomitant]
     Indication: OSTEOPOROSIS PROPHYLAXIS
     Dosage: 1000 MILLIGRAM
     Route: 048
     Dates: start: 20210111
  13. HEVIRAN [Concomitant]
     Active Substance: ACYCLOVIR
     Indication: INFLAMMATION
     Route: 065
     Dates: start: 2021
  14. VENETOCLAX. [Suspect]
     Active Substance: VENETOCLAX
     Indication: MYELODYSPLASTIC SYNDROME
     Route: 065
  15. TIALORID [Concomitant]
     Indication: HYPERTENSION
     Dosage: 55 MILLIGRAM
     Route: 048
     Dates: start: 20210105
  16. AZACITIDINE. [Suspect]
     Active Substance: AZACITIDINE
     Indication: MYELODYSPLASTIC SYNDROME
     Route: 058
     Dates: start: 20201216, end: 20210126
  17. POLPRIL [Concomitant]
     Active Substance: RAMIPRIL
     Indication: CORONARY ARTERY DISEASE
     Route: 048

REACTIONS (1)
  - Inflammation [Recovered/Resolved]

NARRATIVE: CASE EVENT DATE: 20210309
